FAERS Safety Report 5663298-8 (Version None)
Quarter: 2008Q1

REPORT INFORMATION
  Report Type: 
  Country: None (occurrence: None)
  Receive Date: 20080313
  Receipt Date: 20080305
  Transmission Date: 20080703
  Serious: Yes (Life-Threatening, Hospitalization)
  Sender: FDA-Public Use
  Company Number: US-ABBOTT-08P-163-0441098-00

PATIENT
  Age: 25 Year
  Sex: Female

DRUGS (2)
  1. ULTANE [Suspect]
     Indication: ANAESTHESIA
     Route: 055
     Dates: start: 20080303, end: 20080303
  2. ULTANE [Suspect]
     Indication: CAESAREAN SECTION

REACTIONS (1)
  - ACUTE HEPATIC FAILURE [None]
